FAERS Safety Report 16484155 (Version 1)
Quarter: 2019Q3

REPORT INFORMATION
  Report Type: Spontaneous
  Country: US (occurrence: US)
  Receive Date: 20190625
  Receipt Date: 20190625
  Transmission Date: 20191004
  Serious: Yes (Other)
  Sender: FDA-Public Use
  Company Number: None

PATIENT
  Age: 35 Year
  Sex: Female

DRUGS (5)
  1. CIMZIA [Suspect]
     Active Substance: CERTOLIZUMAB PEGOL
     Indication: ANKYLOSING SPONDYLITIS
     Dosage: ?          OTHER FREQUENCY:EVERY 4 WEEKS;?
     Route: 058
     Dates: start: 20190205
  2. ERYTHROMYCIN OIN 5 MG/GM [Concomitant]
  3. ONDANSETRON TAB 8 MG ODT [Concomitant]
  4. NEO/POLY/DEX OIN 0.1% OP [Concomitant]
  5. TOBRAMYCIN SOL 0.3% OP [Concomitant]

REACTIONS (3)
  - Condition aggravated [None]
  - Maternal exposure during pregnancy [None]
  - Morning sickness [None]
